FAERS Safety Report 4913521-X (Version None)
Quarter: 2006Q1

REPORT INFORMATION
  Report Type: 
  Country: None (occurrence: None)
  Receive Date: 20060210
  Receipt Date: 20060127
  Transmission Date: 20060701
  Serious: Yes (Hospitalization)
  Sender: FDA-Public Use
  Company Number: 221371

PATIENT
  Age: 53 Year
  Sex: Male
  Weight: 82.4 kg

DRUGS (5)
  1. AVASTIN [Suspect]
     Indication: COLON CANCER
     Dosage: 412.5 MG, Q2W, INTRAVENOUS
     Route: 042
     Dates: start: 20051108, end: 20060113
  2. OXALIPLATIN(OXALIPLATIN) [Suspect]
     Indication: COLON CANCER
     Dosage: 175 MG, Q2W, INTRAVENOUS
     Route: 042
     Dates: start: 20051108
  3. LEUCOVORIN CALCIUM [Suspect]
     Indication: COLON CANCER
     Dosage: 350 MG, Q2W, INTRAVENOUS
     Route: 042
     Dates: start: 20051108, end: 20051207
  4. FLUOROURACIL [Suspect]
     Indication: COLON CANCER
     Dosage: 825 MG, Q2W, IV BOLUS  : 1250 MG, Q2W, INTRAVENOUS
     Route: 040
     Dates: start: 20051108, end: 20051207
  5. FLUOROURACIL [Suspect]
     Indication: COLON CANCER
     Dosage: 825 MG, Q2W, IV BOLUS  : 1250 MG, Q2W, INTRAVENOUS
     Route: 040
     Dates: start: 20051108

REACTIONS (3)
  - FEELING HOT [None]
  - HYPERSENSITIVITY [None]
  - URTICARIA GENERALISED [None]
